FAERS Safety Report 5289019-9 (Version None)
Quarter: 2007Q2

REPORT INFORMATION
  Report Type: 
  Country: None (occurrence: None)
  Receive Date: 20070405
  Receipt Date: 20070325
  Transmission Date: 20071010
  Serious: Yes (Other)
  Sender: FDA-Public Use
  Company Number: US-PFIZER INC-2007023984

PATIENT
  Sex: Female
  Weight: 49.9 kg

DRUGS (3)
  1. DEPO-SUBQ PROVERA 104 [Suspect]
     Indication: CONTRACEPTION
     Route: 058
     Dates: start: 20060101, end: 20060101
  2. DEPO-SUBQ PROVERA 104 [Suspect]
     Route: 058
     Dates: start: 20070323, end: 20070323
  3. IMITREX [Concomitant]
     Indication: MIGRAINE

REACTIONS (2)
  - INJECTION SITE REACTION [None]
  - MUSCLE ATROPHY [None]
